FAERS Safety Report 8390956-7 (Version None)
Quarter: 2012Q2

REPORT INFORMATION
  Report Type: 
  Country: None (occurrence: None)
  Receive Date: 20120529
  Receipt Date: 20120523
  Transmission Date: 20120825
  Serious: Yes (Other)
  Sender: FDA-Public Use
  Company Number: PHEH2012US008078

PATIENT
  Sex: Female

DRUGS (1)
  1. TOBI [Suspect]
     Dosage: 300 MG, BID

REACTIONS (15)
  - SINUS CONGESTION [None]
  - HAEMOPTYSIS [None]
  - CHEST PAIN [None]
  - DIZZINESS [None]
  - HYPOXIA [None]
  - DYSPHONIA [None]
  - PULMONARY CONGESTION [None]
  - WHEEZING [None]
  - LUNG NEOPLASM [None]
  - RALES [None]
  - SPUTUM DISCOLOURED [None]
  - DYSPNOEA EXERTIONAL [None]
  - WEIGHT DECREASED [None]
  - RHINORRHOEA [None]
  - COUGH [None]
